FAERS Safety Report 23377312 (Version 1)
Quarter: 2024Q1

REPORT INFORMATION
  Report Type: Spontaneous
  Country: QA (occurrence: QA)
  Receive Date: 20240108
  Receipt Date: 20240108
  Transmission Date: 20240410
  Serious: Yes (Hospitalization, Other)
  Sender: FDA-Public Use
  Company Number: QA-CPL-003918

PATIENT
  Age: 29 Year
  Sex: Male

DRUGS (2)
  1. TIZANIDINE HYDROCHLORIDE [Suspect]
     Active Substance: TIZANIDINE HYDROCHLORIDE
     Indication: Insomnia
  2. TIZANIDINE HYDROCHLORIDE [Suspect]
     Active Substance: TIZANIDINE HYDROCHLORIDE
     Indication: Insomnia
     Dosage: WITH A PLANNED TAPERING OF 2 MG PER DAY.

REACTIONS (4)
  - Withdrawal syndrome [Unknown]
  - Overdose [Unknown]
  - Liver injury [Unknown]
  - Renal injury [Unknown]
